FAERS Safety Report 16439860 (Version 4)
Quarter: 2021Q2

REPORT INFORMATION
  Report Type: Spontaneous
  Country: CA (occurrence: CA)
  Receive Date: 20190617
  Receipt Date: 20210616
  Transmission Date: 20210716
  Serious: Yes (Death, Other)
  Sender: FDA-Public Use
  Company Number: CA-009507513-1906CAN005466

PATIENT
  Sex: Male

DRUGS (11)
  1. ZOPICLONE [Suspect]
     Active Substance: ZOPICLONE
     Indication: PRODUCT USED FOR UNKNOWN INDICATION
     Route: 065
  2. QUETIAPINE FUMARATE. [Suspect]
     Active Substance: QUETIAPINE FUMARATE
     Indication: PRODUCT USED FOR UNKNOWN INDICATION
     Route: 065
  3. SERTRALINE HYDROCHLORIDE. [Concomitant]
     Active Substance: SERTRALINE HYDROCHLORIDE
     Route: 065
  4. SUSTIVA [Suspect]
     Active Substance: EFAVIRENZ
     Indication: PRODUCT USED FOR UNKNOWN INDICATION
     Dosage: DOSAGE FORM: NOT SPECIFIED
     Route: 048
  5. LAMIVUDINE. [Suspect]
     Active Substance: LAMIVUDINE
     Indication: PRODUCT USED FOR UNKNOWN INDICATION
     Dosage: DOSAGE FORM: NOT SPECIFIED
     Route: 065
  6. VALPROIC ACID. [Suspect]
     Active Substance: VALPROIC ACID
     Indication: PRODUCT USED FOR UNKNOWN INDICATION
     Route: 065
  7. ATAZANAVIR SULFATE. [Suspect]
     Active Substance: ATAZANAVIR SULFATE
     Indication: PRODUCT USED FOR UNKNOWN INDICATION
     Route: 065
  8. CLONAZEPAM. [Suspect]
     Active Substance: CLONAZEPAM
     Indication: PRODUCT USED FOR UNKNOWN INDICATION
     Route: 065
  9. LOPINAVIR;RITONAVIR [Suspect]
     Active Substance: LOPINAVIR\RITONAVIR
     Indication: PRODUCT USED FOR UNKNOWN INDICATION
     Route: 065
  10. BUPROPION. [Concomitant]
     Active Substance: BUPROPION
     Dosage: UNK
     Route: 065
  11. ISENTRESS [Suspect]
     Active Substance: RALTEGRAVIR POTASSIUM
     Indication: PRODUCT USED FOR UNKNOWN INDICATION
     Dosage: 400 MILLILITER, 2 EVERY 1 DAY
     Route: 048

REACTIONS (2)
  - Depression [Fatal]
  - Drug interaction [Fatal]
